FAERS Safety Report 20556430 (Version 1)
Quarter: 2022Q1

REPORT INFORMATION
  Report Type: Spontaneous
  Country: US (occurrence: US)
  Receive Date: 20220305
  Receipt Date: 20220305
  Transmission Date: 20220423
  Serious: No
  Sender: FDA-Public Use
  Company Number: US-BRISTOL-MYERS SQUIBB COMPANY-BMS-2022-027794

PATIENT
  Age: 77 Year
  Sex: Female
  Weight: 51.1 kg

DRUGS (1)
  1. YERVOY [Suspect]
     Active Substance: IPILIMUMAB
     Indication: Product used for unknown indication
     Dosage: 55 MILLIGRAM, Q3WK
     Route: 042

REACTIONS (1)
  - Adverse event [Unknown]
